FAERS Safety Report 15717587 (Version 1)
Quarter: 2018Q4

REPORT INFORMATION
  Report Type: Spontaneous
  Country: US (occurrence: US)
  Receive Date: 20181129
  Receipt Date: 20181129
  Transmission Date: 20190205
  Serious: Yes (Hospitalization)
  Sender: FDA-Public Use
  Company Number: None

PATIENT
  Age: 61 Year
  Sex: Female
  Weight: 93.44 kg

DRUGS (1)
  1. BENZTROPINE. [Suspect]
     Active Substance: BENZTROPINE
     Indication: PARKINSON^S DISEASE
     Route: 048
     Dates: start: 20180504, end: 20180626

REACTIONS (2)
  - Proctitis [None]
  - Constipation [None]

NARRATIVE: CASE EVENT DATE: 20180626
